FAERS Safety Report 8461593-0 (Version None)
Quarter: 2012Q2

REPORT INFORMATION
  Report Type: 
  Country: None (occurrence: None)
  Receive Date: 20120625
  Receipt Date: 20120619
  Transmission Date: 20120825
  Serious: Yes (Hospitalization, Other)
  Sender: FDA-Public Use
  Company Number: PHEH2012US012202

PATIENT
  Sex: Male

DRUGS (6)
  1. NEXIUM [Concomitant]
     Indication: EAGLE BARRETT SYNDROME
     Dosage: 40 MG ONCE A DAY
     Route: 048
  2. LISINOPRIL [Concomitant]
     Indication: BLOOD PRESSURE
     Dosage: ONCE A DAY
     Route: 048
  3. ASPERCREME [Concomitant]
     Indication: ARTHRITIS
  4. NAMENDA [Concomitant]
     Indication: AMNESIA
     Dosage: 10 MG, BID
     Route: 048
  5. ACETAMINOPHEN [Concomitant]
     Indication: PAIN
     Dosage: 500 MG, PRN
     Route: 048
  6. EXELON [Suspect]
     Indication: AMNESIA
     Dosage: 4.6 MG/24 HOURS
     Route: 062

REACTIONS (3)
  - FOREIGN BODY [None]
  - BLOOD URINE PRESENT [None]
  - WEIGHT DECREASED [None]
